FAERS Safety Report 11652467 (Version 1)
Quarter: 2015Q4

REPORT INFORMATION
  Report Type: Report from Study
  Country: US (occurrence: US)
  Receive Date: 20151022
  Receipt Date: 20151022
  Transmission Date: 20160304
  Serious: No
  Sender: FDA-Public Use
  Company Number: US-CELGENEUS-USA-2015090909

PATIENT
  Age: 74 Year
  Sex: Male

DRUGS (3)
  1. VELCADE [Concomitant]
     Active Substance: BORTEZOMIB
     Indication: PLASMA CELL MYELOMA
     Route: 065
  2. REVLIMID [Suspect]
     Active Substance: LENALIDOMIDE
     Indication: PLASMA CELL MYELOMA
     Route: 048
  3. STEROIDS [Concomitant]
     Active Substance: UNSPECIFIED INGREDIENT
     Indication: PLASMA CELL MYELOMA
     Route: 065

REACTIONS (9)
  - Joint lock [Unknown]
  - Anger [Unknown]
  - Adverse drug reaction [Unknown]
  - Depression [Unknown]
  - Functional gastrointestinal disorder [Unknown]
  - Atonic urinary bladder [Unknown]
  - Pain in extremity [Unknown]
  - Prostatomegaly [Unknown]
  - Hypoaesthesia [Unknown]
